FAERS Safety Report 10952043 (Version 1)
Quarter: 2015Q1

REPORT INFORMATION
  Report Type: Spontaneous
  Country: US (occurrence: None)
  Receive Date: 20150324
  Receipt Date: 20150324
  Transmission Date: 20150721
  Serious: Yes (Life-Threatening, Hospitalization, Disabling)
  Sender: FDA-Public Use
  Company Number: None

PATIENT
  Age: 18 Year
  Sex: Female

DRUGS (1)
  1. MIRENA [Suspect]
     Active Substance: LEVONORGESTREL

REACTIONS (9)
  - Strabismus [None]
  - Fatigue [None]
  - Pain [None]
  - Musculoskeletal pain [None]
  - Incoherent [None]
  - Hypersomnia [None]
  - Dizziness [None]
  - Pain in extremity [None]
  - Benign intracranial hypertension [None]

NARRATIVE: CASE EVENT DATE: 20150320
